FAERS Safety Report 6873519-1 (Version None)
Quarter: 2010Q3

REPORT INFORMATION
  Report Type: 
  Country: None (occurrence: None)
  Receive Date: 20100723
  Receipt Date: 20090211
  Transmission Date: 20110219
  Serious: No
  Sender: FDA-Public Use
  Company Number: US-PFIZER INC-2009158550

PATIENT
  Sex: Female
  Weight: 90.7 kg

DRUGS (11)
  1. CHANTIX [Suspect]
     Indication: SMOKING CESSATION THERAPY
     Dosage: 0.5 MG, 1X/DAY
     Dates: start: 20080611, end: 20080618
  2. ANTIHYPERTENSIVES [Concomitant]
     Indication: HYPERTENSION
  3. DRUG, UNSPECIFIED [Concomitant]
     Indication: THYROID DISORDER
  4. INSULIN [Concomitant]
  5. VOLTAREN [Concomitant]
     Dosage: UNK
  6. MOBIC [Concomitant]
  7. DOXYCYCLINE [Concomitant]
  8. COMBIVENT [Concomitant]
  9. FLOVENT [Concomitant]
  10. LEVOTHYROXINE [Concomitant]
  11. SEROQUEL [Concomitant]

REACTIONS (1)
  - RENAL IMPAIRMENT [None]
